FAERS Safety Report 10021901 (Version 1)
Quarter: 2014Q1

REPORT INFORMATION
  Report Type: Spontaneous
  Country: US (occurrence: None)
  Receive Date: 20140318
  Receipt Date: 20140318
  Transmission Date: 20141002
  Serious: Yes (Other)
  Sender: FDA-Public Use
  Company Number: None

PATIENT
  Age: 34 Year
  Sex: Female

DRUGS (1)
  1. TOPIRAMATE [Suspect]
     Route: 048

REACTIONS (6)
  - Lens dislocation [None]
  - Iris disorder [None]
  - Flat anterior chamber of eye [None]
  - Intraocular pressure increased [None]
  - Myopia [None]
  - Visual impairment [None]
